FAERS Safety Report 5641004-0 (Version None)
Quarter: 2008Q1

REPORT INFORMATION
  Report Type: 
  Country: None (occurrence: None)
  Receive Date: 20080227
  Receipt Date: 20080222
  Transmission Date: 20080703
  Serious: Yes (Hospitalization)
  Sender: FDA-Public Use
  Company Number: JP-BRISTOL-MYERS SQUIBB COMPANY-14066401

PATIENT
  Age: 61 Year
  Sex: Male

DRUGS (7)
  1. REYATAZ [Suspect]
     Indication: HIV INFECTION
     Route: 048
     Dates: start: 20080117
  2. EPZICOM [Suspect]
     Indication: HIV INFECTION
     Route: 048
     Dates: start: 20080117
  3. BAKTAR [Suspect]
     Indication: INFECTION
     Route: 048
     Dates: start: 20071201
  4. BAKTAR [Suspect]
     Indication: PROPHYLAXIS
     Route: 048
     Dates: start: 20071201
  5. RISPERDAL [Suspect]
     Indication: RESTLESSNESS
     Route: 048
     Dates: start: 20071228
  6. GASTER D [Suspect]
     Indication: GASTRITIS
     Route: 048
     Dates: start: 20080109, end: 20080127
  7. VALPROATE SODIUM [Suspect]
     Dates: start: 20080121

REACTIONS (1)
  - BLOOD ALKALINE PHOSPHATASE INCREASED [None]
